FAERS Safety Report 8000783 (Version 5)
Quarter: 2014Q1

REPORT INFORMATION
  Report Type: Spontaneous
  Country: US (occurrence: US)
  Receive Date: 20110621
  Receipt Date: 20140311
  Transmission Date: 20141002
  Serious: No
  Sender: FDA-Public Use
  Company Number: US-ASTRAZENECA-2010SE50911

PATIENT
  Age: 76 Year
  Sex: Male
  Weight: 90.7 kg

DRUGS (38)
  1. NEXIUM [Suspect]
     Indication: ULCER HAEMORRHAGE
     Route: 048
     Dates: start: 2010, end: 20130610
  2. NEXIUM [Suspect]
     Indication: GASTROOESOPHAGEAL REFLUX DISEASE
     Route: 048
     Dates: start: 2010, end: 20130610
  3. NEXIUM [Suspect]
     Indication: ULCER
     Route: 048
     Dates: start: 2010, end: 20130610
  4. NEXIUM [Suspect]
     Indication: ABDOMINAL DISCOMFORT
     Route: 048
     Dates: start: 2010, end: 20130610
  5. NEXIUM [Suspect]
     Indication: ULCER HAEMORRHAGE
     Route: 048
     Dates: start: 2011, end: 20140109
  6. NEXIUM [Suspect]
     Indication: GASTROOESOPHAGEAL REFLUX DISEASE
     Route: 048
     Dates: start: 2011, end: 20140109
  7. NEXIUM [Suspect]
     Indication: ULCER
     Route: 048
     Dates: start: 2011, end: 20140109
  8. NEXIUM [Suspect]
     Indication: ABDOMINAL DISCOMFORT
     Route: 048
     Dates: start: 2011, end: 20140109
  9. PRILOSEC [Suspect]
     Route: 048
  10. PULMICORT FLEXHALER [Suspect]
     Route: 055
  11. TOPROL XL [Suspect]
     Indication: BLOOD PRESSURE ABNORMAL
     Route: 048
     Dates: start: 1993
  12. TRAMADOL HCL [Concomitant]
     Indication: PAIN
  13. TRAMADOL HCL [Concomitant]
     Indication: ARTHRITIS
  14. FERROUS SULFATE [Concomitant]
     Indication: ANAEMIA
  15. ECOTRIN [Concomitant]
     Indication: ANTICOAGULANT THERAPY
  16. CENTRUM / CENTIUM A-Z [Concomitant]
     Indication: VITAMIN SUPPLEMENTATION
  17. NIACIN [Concomitant]
     Indication: VITAMIN SUPPLEMENTATION
  18. MEVACOR [Concomitant]
     Indication: BLOOD CHOLESTEROL ABNORMAL
  19. XANAX [Concomitant]
     Indication: ANXIETY
  20. AMIODARON [Concomitant]
     Indication: CARDIAC DISORDER
  21. ACEON [Concomitant]
     Indication: BLOOD PRESSURE ABNORMAL
  22. FUROSEMIDE [Concomitant]
     Indication: FLUID RETENTION
  23. FUROSEMIDE [Concomitant]
     Indication: BLOOD PRESSURE ABNORMAL
  24. FUROSEMIDE [Concomitant]
     Indication: DIURETIC THERAPY
  25. FUROSEMIDE [Concomitant]
     Indication: POLYURIA
  26. SINGULAIR [Concomitant]
     Indication: MULTIPLE ALLERGIES
  27. LORATADINE [Concomitant]
  28. COMBIVENT/ COMVIDENT [Concomitant]
     Indication: ASTHMA
  29. SPIRONOLACTONE [Concomitant]
     Indication: BLOOD PRESSURE ABNORMAL
  30. NITROGLYCERIN [Concomitant]
     Indication: CHEST PAIN
  31. NASACORT/ NASACORT- AQ [Concomitant]
     Indication: MULTIPLE ALLERGIES
  32. DIGOXIN [Concomitant]
     Indication: CARDIAC DISORDER
  33. ACETAMINOPHEN [Concomitant]
  34. LEVOTHYROXINE/ SYNTHROID [Concomitant]
     Indication: THYROID DISORDER
  35. MAALOX [Concomitant]
     Indication: ULCER HAEMORRHAGE
  36. OXYGEN [Concomitant]
     Indication: CHRONIC OBSTRUCTIVE PULMONARY DISEASE
  37. VITAMIN E [Concomitant]
     Indication: VITAMIN SUPPLEMENTATION
  38. LISINOPRIL [Concomitant]
     Indication: BLOOD PRESSURE ABNORMAL

REACTIONS (7)
  - Peptic ulcer [Unknown]
  - Nasopharyngitis [Unknown]
  - Nasal congestion [Unknown]
  - Diarrhoea [Not Recovered/Not Resolved]
  - Drug dose omission [Unknown]
  - Intentional drug misuse [Not Recovered/Not Resolved]
  - Drug ineffective [Unknown]
